FAERS Safety Report 5119104-3 (Version None)
Quarter: 2006Q3

REPORT INFORMATION
  Report Type: 
  Country: None (occurrence: None)
  Receive Date: 20060926
  Receipt Date: 20060915
  Transmission Date: 20061208
  Serious: Yes (Hospitalization)
  Sender: FDA-Public Use
  Company Number: 6025830

PATIENT
  Age: 96 Year
  Sex: Female

DRUGS (9)
  1. BISOPROLOL FUMARATE [Suspect]
     Indication: DRUG USE FOR UNKNOWN INDICATION
     Dosage: 1,25 MG (1,25 MG, 1 IN 1 D) ORAL
     Route: 048
     Dates: start: 20060603
  2. ATACAND [Suspect]
     Indication: DRUG USE FOR UNKNOWN INDICATION
     Dosage: 4 MG (4 MG, 1 D), ORAL
     Route: 048
     Dates: start: 20060603, end: 20060812
  3. LASIX [Suspect]
     Indication: DRUG USE FOR UNKNOWN INDICATION
     Dosage: 20 MG (20 MG, 1 D) ORAL
     Route: 048
     Dates: start: 20060603
  4. LORATADINE [Suspect]
     Indication: DRUG USE FOR UNKNOWN INDICATION
     Dates: start: 20060624
  5. ATARAX [Suspect]
     Indication: DRUG USE FOR UNKNOWN INDICATION
     Dosage: 25 MG (25 MG, 1 IN 1 D), ORAL
     Route: 048
     Dates: end: 20060713
  6. POTASSIUM CHLORIDE [Concomitant]
  7. BETASELEM [Concomitant]
  8. IKOREL (NICORANDIL) [Concomitant]
  9. MAXEPA (FLUCOSE, CITRIC ACID, TRIACETIN, SODIUM BICARBONATE, POTASSIUM [Concomitant]

REACTIONS (1)
  - PEMPHIGOID [None]
